FAERS Safety Report 7582632-5 (Version None)
Quarter: 2011Q2

REPORT INFORMATION
  Report Type: 
  Country: None (occurrence: None)
  Receive Date: 20110630
  Receipt Date: 20110627
  Transmission Date: 20111010
  Serious: Yes (Other)
  Sender: FDA-Public Use
  Company Number: US-PFIZER INC-2011086428

PATIENT
  Sex: Male

DRUGS (4)
  1. LIPITOR [Concomitant]
     Indication: HYPERCHOLESTEROLAEMIA
     Dosage: UNK
     Dates: start: 20060101
  2. ATENOLOL [Concomitant]
     Indication: HEART RATE
     Dosage: UNK
     Dates: start: 20070101
  3. TRIAMTERENE [Concomitant]
     Indication: HYPERTENSION
     Dosage: UNK
     Dates: start: 20060101
  4. CHANTIX [Suspect]
     Indication: SMOKING CESSATION THERAPY
     Dosage: 0.5 MG AND 1 MG
     Dates: start: 20080505, end: 20081001

REACTIONS (5)
  - AGGRESSION [None]
  - MENTAL DISORDER [None]
  - DEPRESSION [None]
  - SUICIDAL BEHAVIOUR [None]
  - ANXIETY [None]
